FAERS Safety Report 5906855-3 (Version None)
Quarter: 2008Q3

REPORT INFORMATION
  Report Type: 
  Country: None (occurrence: None)
  Receive Date: 20080929
  Receipt Date: 20080918
  Transmission Date: 20090109
  Serious: Yes (Hospitalization)
  Sender: FDA-Public Use
  Company Number: 2008BI014717

PATIENT
  Age: 55 Year
  Sex: Male

DRUGS (1)
  1. AVONEX [Suspect]
     Indication: MULTIPLE SCLEROSIS
     Dosage: 30 UG; QW; IM
     Route: 030
     Dates: start: 20070901

REACTIONS (6)
  - CONDITION AGGRAVATED [None]
  - GASTRIC ULCER [None]
  - INTESTINAL PERFORATION [None]
  - MULTIPLE SCLEROSIS [None]
  - STRESS [None]
  - THROMBOSIS [None]
